FAERS Safety Report 6557484-2 (Version None)
Quarter: 2010Q1

REPORT INFORMATION
  Report Type: 
  Country: None (occurrence: None)
  Receive Date: 20100129
  Receipt Date: 20100122
  Transmission Date: 20100710
  Serious: Yes (Hospitalization)
  Sender: FDA-Public Use
  Company Number: US-ROCHE-642204

PATIENT
  Sex: Male
  Weight: 81 kg

DRUGS (7)
  1. PEG-INTERFERON ALFA 2A (RO 25-8310) [Suspect]
     Indication: HEPATITIS C
     Dosage: LAST DOSE PRIOR TO SAE: 15 DECEMBER 2009. DOSAGE FORM REPORTED AS PRE FILLED SYRINGES (PFS).
     Route: 058
     Dates: start: 20090602
  2. RIBAVIRIN [Suspect]
     Indication: HEPATITIS C
     Dosage: DATE OF LAST DOSE PRIOR TO SAE: 20 DECEMBER 2009.
     Route: 048
     Dates: start: 20090602
  3. OMEPRAZOLE [Concomitant]
  4. MIRTAZAPINE [Concomitant]
  5. VISTARIL [Concomitant]
     Dates: start: 20090701
  6. ALEVE (CAPLET) [Concomitant]
     Dosage: DRUG NAME REPORTED AS ALLEVE.
     Dates: start: 20090801
  7. NEUPOGEN [Concomitant]
     Dates: start: 20090617

REACTIONS (3)
  - CELLULITIS [None]
  - LYMPHOCELE [None]
  - MALIGNANT MELANOMA [None]
